FAERS Safety Report 16129175 (Version 2)
Quarter: 2021Q3

REPORT INFORMATION
  Report Type: Spontaneous
  Country: US (occurrence: US)
  Receive Date: 20190328
  Receipt Date: 20210709
  Transmission Date: 20211014
  Serious: No
  Sender: FDA-Public Use
  Company Number: US-SHIRE-US201849967

PATIENT
  Age: 23 Year
  Sex: Male

DRUGS (11)
  1. NATPARA (PARATHYROID HORMONE) [Suspect]
     Active Substance: PARATHYROID HORMONE
     Indication: ANTIPHOSPHOLIPID SYNDROME
     Dosage: 50 MCG, 1X/DAY:QD
     Route: 050
     Dates: start: 20170817
  2. NATPARA (PARATHYROID HORMONE) [Suspect]
     Active Substance: PARATHYROID HORMONE
     Indication: ANTIPHOSPHOLIPID SYNDROME
     Dosage: 50 MCG, 1X/DAY:QD
     Route: 050
     Dates: start: 20170817
  3. NATPARA (PARATHYROID HORMONE) [Suspect]
     Active Substance: PARATHYROID HORMONE
     Dosage: UNK
     Route: 065
  4. NATPARA (PARATHYROID HORMONE) [Suspect]
     Active Substance: PARATHYROID HORMONE
     Dosage: UNK
     Route: 065
  5. NATPARA (PARATHYROID HORMONE) [Suspect]
     Active Substance: PARATHYROID HORMONE
     Indication: ANTIPHOSPHOLIPID SYNDROME
     Dosage: 50 MCG, 1X/DAY:QD
     Route: 050
     Dates: start: 20170817
  6. NATPARA (PARATHYROID HORMONE) [Suspect]
     Active Substance: PARATHYROID HORMONE
     Indication: OFF LABEL USE
     Dosage: 75 MICROGRAM, 1X/DAY:QD50 MCG, 1X/DAY:QD
     Route: 065
     Dates: start: 20190321
  7. NATPARA (PARATHYROID HORMONE) [Suspect]
     Active Substance: PARATHYROID HORMONE
     Indication: OFF LABEL USE
     Dosage: 75 MICROGRAM, 1X/DAY:QD50 MCG, 1X/DAY:QD
     Route: 065
     Dates: start: 20190321
  8. NATPARA (PARATHYROID HORMONE) [Suspect]
     Active Substance: PARATHYROID HORMONE
     Dosage: UNK
     Route: 065
  9. CALCIUM [Concomitant]
     Active Substance: CALCIUM
     Indication: PRODUCT USED FOR UNKNOWN INDICATION
  10. NATPARA (PARATHYROID HORMONE) [Suspect]
     Active Substance: PARATHYROID HORMONE
     Indication: OFF LABEL USE
     Dosage: 75 MICROGRAM, 1X/DAY:QD50 MCG, 1X/DAY:QD
     Route: 065
     Dates: start: 20190321
  11. CALCITRIOL. [Concomitant]
     Active Substance: CALCITRIOL
     Indication: PRODUCT USED FOR UNKNOWN INDICATION

REACTIONS (4)
  - Paraesthesia oral [Unknown]
  - Inappropriate schedule of product administration [Unknown]
  - Off label use [Unknown]
  - Expired device used [Unknown]

NARRATIVE: CASE EVENT DATE: 20181228
